FAERS Safety Report 9265266 (Version 1)
Quarter: 2013Q2

REPORT INFORMATION
  Report Type: Spontaneous
  Country: US (occurrence: US)
  Receive Date: 20130501
  Receipt Date: 20130501
  Transmission Date: 20140414
  Serious: No
  Sender: FDA-Public Use
  Company Number: US-BAYER-2013-053135

PATIENT
  Age: 50 Year
  Sex: Female

DRUGS (1)
  1. NATAZIA [Suspect]
     Indication: MENORRHAGIA
     Dosage: UNK
     Dates: start: 201211

REACTIONS (1)
  - Thyroid function test abnormal [Not Recovered/Not Resolved]
